FAERS Safety Report 8958975 (Version 2)
Quarter: 2012Q4

REPORT INFORMATION
  Report Type: 
  Country: VE (occurrence: VE)
  Receive Date: 20121212
  Receipt Date: 20121217
  Transmission Date: 20130627
  Serious: Yes (Other)
  Sender: FDA-Public Use
  Company Number: PHHY2012VE041224

PATIENT
  Age: 33 Year
  Sex: Male

DRUGS (3)
  1. GILENYA [Suspect]
     Indication: RELAPSING-REMITTING MULTIPLE SCLEROSIS
     Dosage: 0.5 mg, QD
     Route: 048
     Dates: start: 20111129
  2. SIRDALUD [Suspect]
  3. REMERON [Concomitant]

REACTIONS (11)
  - Otitis media [Recovering/Resolving]
  - Ear pain [Recovering/Resolving]
  - Sinusitis [Recovering/Resolving]
  - Lymphocyte percentage decreased [Recovering/Resolving]
  - Gastritis erosive [Recovered/Resolved]
  - Abdominal discomfort [Recovered/Resolved]
  - Dysphonia [Recovering/Resolving]
  - Nasal congestion [Recovering/Resolving]
  - Somnolence [Recovered/Resolved]
  - Influenza [Recovering/Resolving]
  - Weight decreased [Not Recovered/Not Resolved]
